FAERS Safety Report 4442908-7 (Version None)
Quarter: 2004Q3

REPORT INFORMATION
  Report Type: 
  Country: None (occurrence: None)
  Receive Date: 20040728
  Receipt Date: 20040603
  Transmission Date: 20050211
  Serious: No
  Sender: FDA-Public Use
  Company Number: USA040568332

PATIENT
  Age: 53 Year
  Sex: Female
  Weight: 56 kg

DRUGS (14)
  1. STRATTERA [Suspect]
     Indication: ATTENTION DEFICIT/HYPERACTIVITY DISORDER
     Dosage: 80 MG/ 1 DAY
     Dates: start: 20040512
  2. DOXEPIN HCL [Concomitant]
  3. THYROID TAB [Concomitant]
  4. MULTIVITAMIN [Concomitant]
  5. LAMICTAL [Concomitant]
  6. ENDOCET [Concomitant]
  7. REMERON [Concomitant]
  8. KLONOPIN [Concomitant]
  9. VITAMIN B-12 [Concomitant]
  10. CENTRUM [Concomitant]
  11. ZYRTEC [Concomitant]
  12. NASAREL (FLUNISOLIDE) [Concomitant]
  13. TUMS (CALCIUM CARBONATE) [Concomitant]
  14. POTASSIUM [Concomitant]

REACTIONS (14)
  - ABDOMINAL DISTENSION [None]
  - AMNESIA [None]
  - DIARRHOEA [None]
  - DRY MOUTH [None]
  - DYSPEPSIA [None]
  - ERUCTATION [None]
  - HEADACHE [None]
  - HYPOTENSION [None]
  - NAUSEA [None]
  - ORAL DISCOMFORT [None]
  - SLEEP DISORDER [None]
  - URINARY HESITATION [None]
  - VOMITING [None]
  - WEIGHT INCREASED [None]
